FAERS Safety Report 8976107 (Version 1)
Quarter: 2012Q4

REPORT INFORMATION
  Report Type: 
  Country: US (occurrence: US)
  Receive Date: 20121220
  Receipt Date: 20121220
  Transmission Date: 20130627
  Serious: No
  Sender: FDA-Public Use
  Company Number: US-TEVA-374435USA

PATIENT
  Sex: Female

DRUGS (1)
  1. FENTORA [Suspect]
     Dosage: 200 mcg and 400 mcg tablet, dose not specified
     Route: 002

REACTIONS (6)
  - Dysgeusia [Unknown]
  - Incorrect route of drug administration [Unknown]
  - Pain [Unknown]
  - Mental disorder [Unknown]
  - Insomnia [Unknown]
  - Eating disorder [Unknown]
